FAERS Safety Report 6891178-9 (Version None)
Quarter: 2010Q3

REPORT INFORMATION
  Report Type: 
  Country: None (occurrence: None)
  Receive Date: 20100731
  Receipt Date: 20090617
  Transmission Date: 20110219
  Serious: No
  Sender: FDA-Public Use
  Company Number: US-PFIZER INC-2009208539

PATIENT
  Sex: Male
  Weight: 86.168 kg

DRUGS (4)
  1. LIPITOR [Suspect]
     Indication: BLOOD CHOLESTEROL
     Dosage: 10 MG, 1X/DAY
  2. ACETYLSALICYLIC ACID [Concomitant]
     Dosage: UNK
  3. FINASTERIDE [Concomitant]
     Dosage: UNK
  4. RAMIPRIL [Concomitant]
     Dosage: UNK

REACTIONS (2)
  - RENAL PAIN [None]
  - WRONG TECHNIQUE IN DRUG USAGE PROCESS [None]
